FAERS Safety Report 8062107-X (Version None)
Quarter: 2012Q1

REPORT INFORMATION
  Report Type: 
  Country: None (occurrence: None)
  Receive Date: 20120120
  Receipt Date: 20120120
  Transmission Date: 20120608
  Serious: No
  Sender: FDA-Public Use
  Company Number: None

PATIENT
  Age: 43 Year
  Sex: Male
  Weight: 126.3 kg

DRUGS (1)
  1. PEGLOTICASE [Suspect]
     Indication: GOUT
     Dosage: 8 MG ONCE IV
     Route: 042
     Dates: start: 20111221, end: 20120118

REACTIONS (9)
  - HYPOTENSION [None]
  - CHILLS [None]
  - TREMOR [None]
  - TACHYCARDIA [None]
  - ABDOMINAL PAIN [None]
  - FEELING COLD [None]
  - ABDOMINAL PAIN UPPER [None]
  - INFUSION RELATED REACTION [None]
  - ABDOMINAL DISCOMFORT [None]
